FAERS Safety Report 15049040 (Version 2)
Quarter: 2018Q3

REPORT INFORMATION
  Report Type: Spontaneous
  Country: GB (occurrence: GB)
  Receive Date: 20180622
  Receipt Date: 20180715
  Transmission Date: 20181010
  Serious: Yes (Other)
  Sender: FDA-Public Use
  Company Number: PHHY2017GB203906

PATIENT
  Age: 42 Year
  Sex: Female

DRUGS (2)
  1. METHOTREXATE. [Suspect]
     Active Substance: METHOTREXATE
     Indication: PRODUCT USED FOR UNKNOWN INDICATION
     Dosage: UNK
     Route: 065
  2. SIMPONI [Suspect]
     Active Substance: GOLIMUMAB
     Indication: ARTHRITIS
     Dosage: 50 MG, QMO
     Route: 058
     Dates: start: 201711

REACTIONS (7)
  - Subcutaneous abscess [Recovered/Resolved]
  - Arthralgia [Unknown]
  - Menstrual disorder [Recovered/Resolved]
  - Drug effect decreased [Unknown]
  - Groin abscess [Unknown]
  - Pain in extremity [Unknown]
  - Blood glucose increased [Unknown]

NARRATIVE: CASE EVENT DATE: 20171225
